FAERS Safety Report 6098178-X (Version None)
Quarter: 2009Q1

REPORT INFORMATION
  Report Type: 
  Country: None (occurrence: None)
  Receive Date: 20090227
  Receipt Date: 20090217
  Transmission Date: 20090719
  Serious: Yes (Hospitalization)
  Sender: FDA-Public Use
  Company Number: PHHO2009US01366

PATIENT
  Age: 56 Year
  Sex: Male
  Weight: 61.224 kg

DRUGS (30)
  1. ZOLEDRONIC ACID [Suspect]
     Indication: ORGAN TRANSPLANT
     Dosage: DOUBLE BLIND
     Route: 042
     Dates: start: 20081229, end: 20090122
  2. BLINDED ALENDRONATE SODIUM COMP-ALS+ [Suspect]
     Indication: ORGAN TRANSPLANT
     Dosage: DOUBLE BLIND
     Route: 042
     Dates: start: 20081229, end: 20090122
  3. BLINDED NO TREATMENT RECEIVED NOMED [Suspect]
     Indication: ORGAN TRANSPLANT
     Dosage: DOUBLE BLIND
     Route: 042
     Dates: start: 20081229, end: 20090122
  4. CYCLOSPORINE [Suspect]
  5. DRISDOL [Suspect]
     Dosage: 50,000 UNITS A DAY FOR 5 DAYS
     Dates: start: 20081218
  6. CALCIUM [Concomitant]
  7. VITAMIN D [Concomitant]
  8. CELLCEPT [Concomitant]
  9. PREDNISONE [Concomitant]
  10. MEPRON [Concomitant]
  11. MYCOSTATIN [Concomitant]
  12. VALCYTE [Concomitant]
  13. ASPIRIN [Concomitant]
  14. LIPITOR [Concomitant]
  15. SYNTHROID [Concomitant]
  16. SILDENAFIL CITRATE [Concomitant]
  17. NEXIUM [Concomitant]
  18. CITRACAL [Concomitant]
  19. IRON [Concomitant]
  20. LANTUS [Concomitant]
  21. ATOVAQUONE [Concomitant]
  22. MULTI-VITAMINS [Concomitant]
  23. KLONOPIN [Concomitant]
  24. ASPIRIN [Concomitant]
  25. PRENATAL [Concomitant]
  26. TYLENOL [Concomitant]
  27. PERCOCET [Concomitant]
  28. ALENDRONATE SODIUM [Concomitant]
  29. TRAZODONE HCL [Concomitant]
  30. SENNA [Concomitant]

REACTIONS (17)
  - ASPIRATION PLEURAL CAVITY [None]
  - CATHETERISATION CARDIAC [None]
  - CHEST TUBE INSERTION [None]
  - DIZZINESS [None]
  - DYSPNOEA [None]
  - EMPYEMA [None]
  - FLANK PAIN [None]
  - NEPHROLITHIASIS [None]
  - NEUTROPENIA [None]
  - PLEURAL EFFUSION [None]
  - RENAL ATROPHY [None]
  - RENAL DISORDER [None]
  - RENAL IMPAIRMENT [None]
  - SEPSIS [None]
  - STAPHYLOCOCCAL BACTERAEMIA [None]
  - THERAPEUTIC AGENT TOXICITY [None]
  - URETHRAL DILATATION [None]
